FAERS Safety Report 5095127-8 (Version None)
Quarter: 2006Q3

REPORT INFORMATION
  Report Type: 
  Country: None (occurrence: None)
  Receive Date: 20060830
  Receipt Date: 20060821
  Transmission Date: 20061208
  Serious: Yes (Hospitalization)
  Sender: FDA-Public Use
  Company Number: TPA2006A01385

PATIENT
  Age: 68 Year
  Sex: Male

DRUGS (5)
  1. ROZEREM [Suspect]
     Indication: INSOMNIA
     Dosage: 8 MG, HS, PER ORAL
     Route: 048
     Dates: start: 20060807
  2. FUROSEMIDE [Concomitant]
  3. REGLAN [Concomitant]
  4. PREVACID [Concomitant]
  5. ALLOPURINOL [Concomitant]

REACTIONS (1)
  - BLOOD GLUCOSE DECREASED [None]
